FAERS Safety Report 13605429 (Version 1)
Quarter: 2017Q2

REPORT INFORMATION
  Report Type: Spontaneous
  Country: US (occurrence: US)
  Receive Date: 20170602
  Receipt Date: 20170602
  Transmission Date: 20170830
  Serious: Yes (Life-Threatening, Hospitalization, Disabling)
  Sender: FDA-Public Use
  Company Number: None

PATIENT
  Age: 86 Year
  Weight: 78.75 kg

DRUGS (3)
  1. PANTOPRAZOLE [Concomitant]
     Active Substance: PANTOPRAZOLE
  2. LEVOFLOXACIN. [Suspect]
     Active Substance: LEVOFLOXACIN
     Indication: PNEUMONIA
     Dosage: ?          QUANTITY:7 TABLET(S);?
     Route: 048
     Dates: start: 20170428, end: 20170501
  3. PLANT DERIVED MINERALS [Concomitant]

REACTIONS (13)
  - Ulcer haemorrhage [None]
  - Melaena [None]
  - Influenza [None]
  - Wrong technique in product usage process [None]
  - Tendon pain [None]
  - Abnormal faeces [None]
  - Renal failure [None]
  - Heart rate increased [None]
  - Musculoskeletal disorder [None]
  - Faeces discoloured [None]
  - Haematochezia [None]
  - Neuralgia [None]
  - Inappropriate schedule of drug administration [None]

NARRATIVE: CASE EVENT DATE: 20170428
